FAERS Safety Report 13988160 (Version 4)
Quarter: 2017Q4

REPORT INFORMATION
  Report Type: Spontaneous
  Country: BG (occurrence: BG)
  Receive Date: 20170919
  Receipt Date: 20171018
  Transmission Date: 20180321
  Serious: Yes (Life-Threatening, Hospitalization)
  Sender: FDA-Public Use
  Company Number: BG-B.I. PHARMACEUTICALS,INC./RIDGEFIELD-2017-BI-051204

PATIENT
  Age: 49 Year
  Sex: Male

DRUGS (2)
  1. PRAXBIND [Suspect]
     Active Substance: IDARUCIZUMAB
     Indication: HEART TRANSPLANT
     Dosage: FORM STRENGTH: 50 ML 2/2.5 G; THERAPY START DATE: ON THE DAY OF SURGERY
     Route: 065
     Dates: start: 20160713
  2. PRAXBIND [Suspect]
     Active Substance: IDARUCIZUMAB
     Indication: PROCEDURAL HAEMORRHAGE
     Dosage: FORM STRENGTH: 50 ML 2/2.5 G; START DATE: AFTER TRANSPLANTATION (AROUND 8 HOURS AFTER FIRST DOSE)
     Route: 065

REACTIONS (1)
  - Intentional overdose [Recovered/Resolved]
